FAERS Safety Report 15308499 (Version 12)
Quarter: 2019Q4

REPORT INFORMATION
  Report Type: Report from Study
  Country: US (occurrence: US)
  Receive Date: 20180822
  Receipt Date: 20191002
  Transmission Date: 20200122
  Serious: Yes (Death, Hospitalization)
  Sender: FDA-Public Use
  Company Number: US-EISAI MEDICAL RESEARCH-EC-2018-039917

PATIENT
  Age: 75 Year
  Sex: Female
  Weight: 51.5 kg

DRUGS (26)
  1. LENVATINIB [Suspect]
     Active Substance: LENVATINIB
     Route: 048
     Dates: start: 20180731, end: 20180914
  2. EVEROLIMUS. [Suspect]
     Active Substance: EVEROLIMUS
     Route: 048
     Dates: start: 20180731, end: 20180914
  3. EVEROLIMUS. [Suspect]
     Active Substance: EVEROLIMUS
     Route: 048
     Dates: start: 20181109, end: 20181212
  4. LACTULOSE. [Concomitant]
     Active Substance: LACTULOSE
  5. LISINOPRIL. [Concomitant]
     Active Substance: LISINOPRIL
  6. LENVATINIB [Suspect]
     Active Substance: LENVATINIB
     Indication: PAPILLARY RENAL CELL CARCINOMA
     Route: 048
     Dates: start: 20180305, end: 20180401
  7. LENVATINIB [Suspect]
     Active Substance: LENVATINIB
     Route: 048
     Dates: start: 20180927, end: 20181017
  8. EVEROLIMUS. [Suspect]
     Active Substance: EVEROLIMUS
     Indication: PAPILLARY RENAL CELL CARCINOMA
     Route: 048
     Dates: start: 20180305, end: 20180401
  9. EVEROLIMUS. [Suspect]
     Active Substance: EVEROLIMUS
     Route: 048
     Dates: start: 20180510, end: 20180609
  10. EVEROLIMUS. [Suspect]
     Active Substance: EVEROLIMUS
     Route: 048
     Dates: start: 20180405, end: 20180503
  11. LENVATINIB [Suspect]
     Active Substance: LENVATINIB
     Route: 048
     Dates: start: 20180510, end: 20180609
  12. LENVATINIB [Suspect]
     Active Substance: LENVATINIB
     Route: 048
     Dates: start: 20180702, end: 20180723
  13. EVEROLIMUS. [Suspect]
     Active Substance: EVEROLIMUS
     Route: 048
     Dates: start: 20181030, end: 20181105
  14. MEGESTROL [Concomitant]
     Active Substance: MEGESTROL
  15. MIRTAZAPINE. [Concomitant]
     Active Substance: MIRTAZAPINE
  16. EVEROLIMUS. [Suspect]
     Active Substance: EVEROLIMUS
     Route: 048
     Dates: start: 20180702, end: 20180723
  17. OTC DRY EYES DROPS [Concomitant]
  18. LENVATINIB [Suspect]
     Active Substance: LENVATINIB
     Route: 048
     Dates: start: 20180405, end: 20180503
  19. LENVATINIB [Suspect]
     Active Substance: LENVATINIB
     Route: 048
     Dates: start: 20181030, end: 20181105
  20. EVEROLIMUS. [Suspect]
     Active Substance: EVEROLIMUS
     Route: 048
     Dates: start: 20180611, end: 20180625
  21. LEVOTHYROXINE. [Concomitant]
     Active Substance: LEVOTHYROXINE
  22. ATROPINE- DIPHENOXYLATE [Concomitant]
  23. EVEROLIMUS. [Suspect]
     Active Substance: EVEROLIMUS
     Route: 048
     Dates: start: 20180916, end: 20180916
  24. LENVATINIB [Suspect]
     Active Substance: LENVATINIB
     Route: 048
     Dates: start: 20180611, end: 20180625
  25. LENVATINIB [Suspect]
     Active Substance: LENVATINIB
     Route: 048
     Dates: start: 20181109, end: 20181212
  26. EVEROLIMUS. [Suspect]
     Active Substance: EVEROLIMUS
     Route: 048
     Dates: start: 20180927, end: 20181018

REACTIONS (7)
  - Fall [Recovered/Resolved]
  - Dizziness [Recovered/Resolved]
  - International normalised ratio increased [Recovered/Resolved]
  - Haematochezia [Recovered/Resolved]
  - Diarrhoea [Recovered/Resolved]
  - Malignant neoplasm progression [Fatal]
  - Hepatic encephalopathy [Recovered/Resolved]

NARRATIVE: CASE EVENT DATE: 20180506
